FAERS Safety Report 7273183-6 (Version None)
Quarter: 2011Q1

REPORT INFORMATION
  Report Type: 
  Country: None (occurrence: None)
  Receive Date: 20110126
  Receipt Date: 20110111
  Transmission Date: 20110831
  Serious: Yes (Hospitalization, Other)
  Sender: FDA-Public Use
  Company Number: 2011AP000032

PATIENT
  Age: 34 Year
  Sex: Male

DRUGS (7)
  1. CITALOPRAM HYDROBROMIDE [Suspect]
     Dosage: 240 MG;
  2. DIAZEPAM [Suspect]
     Dosage: 140 G;
  3. AMLODIPINE BESYLATE [Suspect]
  4. DOXAZOSIN MESYLATE [Suspect]
  5. TEMAZEPAM [Suspect]
     Dosage: 120 MG;
  6. CO-CODAMOL (PANADEINE CO) [Suspect]
     Dosage: 140 G;
  7. PERINDOPRIL ERBUMINE [Suspect]

REACTIONS (17)
  - HYPOXIA [None]
  - BLOOD CREATININE INCREASED [None]
  - MULTIPLE-DRUG RESISTANCE [None]
  - HYPEROXALURIA [None]
  - MULTIPLE DRUG OVERDOSE [None]
  - METABOLIC ACIDOSIS [None]
  - AGGRESSION [None]
  - THROMBOSIS IN DEVICE [None]
  - HYPOTENSION [None]
  - BLOOD POTASSIUM DECREASED [None]
  - TOXICITY TO VARIOUS AGENTS [None]
  - BLOOD LACTIC ACID INCREASED [None]
  - HYPERCALCIURIA [None]
  - LOSS OF CONSCIOUSNESS [None]
  - HEART RATE INCREASED [None]
  - CHEMICAL POISONING [None]
  - CONTINUOUS HAEMODIAFILTRATION [None]
